FAERS Safety Report 17005118 (Version 1)
Quarter: 2019Q4

REPORT INFORMATION
  Report Type: Spontaneous
  Country: US (occurrence: US)
  Receive Date: 20191107
  Receipt Date: 20191107
  Transmission Date: 20200122
  Serious: Yes (Hospitalization)
  Sender: FDA-Public Use
  Company Number: US-ASTRAZENECA-2019SF56096

PATIENT
  Age: 73 Year
  Sex: Female

DRUGS (8)
  1. FASENRA [Suspect]
     Active Substance: BENRALIZUMAB
     Indication: ASTHMA
     Route: 058
  2. QVAR [Concomitant]
     Active Substance: BECLOMETHASONE DIPROPIONATE
     Dosage: 80, TWO TIMES A DAY
  3. BEVESPI AEROSPHERE [Concomitant]
     Active Substance: FORMOTEROL FUMARATE\GLYCOPYRROLATE
     Indication: CHRONIC OBSTRUCTIVE PULMONARY DISEASE
     Dosage: 9, TWO TIMES A DAY
     Route: 007
  4. DILTIAZEM. [Concomitant]
     Active Substance: DILTIAZEM
     Dosage: 60, TWO TIMES A DAY
  5. PREDNISONE. [Concomitant]
     Active Substance: PREDNISONE
     Indication: BRONCHITIS
     Dosage: 40
     Dates: start: 20191009
  6. AUGMENTATION [Concomitant]
     Indication: MEDICAL ANABOLIC THERAPY
     Dosage: 875, TWO TIMES A DAY
     Dates: start: 20191009
  7. PRAVASTATIN. [Concomitant]
     Active Substance: PRAVASTATIN
  8. HCTZ [Concomitant]
     Active Substance: HYDROCHLOROTHIAZIDE
     Dosage: 25, TWO TIMES A DAY

REACTIONS (4)
  - Enteritis [Unknown]
  - Cystitis [Unknown]
  - Haematuria [Unknown]
  - Escherichia bacteraemia [Unknown]
